FAERS Safety Report 7598627-1 (Version None)
Quarter: 2011Q3

REPORT INFORMATION
  Report Type: 
  Country: None (occurrence: None)
  Receive Date: 20110710
  Receipt Date: 20110629
  Transmission Date: 20111222
  Serious: Yes (Hospitalization, Other)
  Sender: FDA-Public Use
  Company Number: US-ABBOTT-11R-163-0835445-00

PATIENT
  Sex: Female
  Weight: 2.566 kg

DRUGS (1)
  1. SURVANTA [Suspect]
     Indication: PRODUCT USED FOR UNKNOWN INDICATION
     Dosage: INTRATRACHEAL INSTILLATION @4ML/KG
     Route: 050
     Dates: start: 20110622

REACTIONS (5)
  - OXYGEN SUPPLEMENTATION [None]
  - SEPSIS [None]
  - DRUG INEFFECTIVE [None]
  - NEONATAL RESPIRATORY DISTRESS SYNDROME [None]
  - CONTINUOUS POSITIVE AIRWAY PRESSURE [None]
